FAERS Safety Report 4755407-X (Version None)
Quarter: 2005Q3

REPORT INFORMATION
  Report Type: 
  Country: None (occurrence: None)
  Receive Date: 20050826
  Receipt Date: 20050826
  Transmission Date: 20060218
  Serious: Yes (Other)
  Sender: FDA-Public Use
  Company Number: None

PATIENT
  Sex: Male

DRUGS (5)
  1. KETEK [Suspect]
     Indication: BRONCHITIS
     Dosage: 800 MG PO ONCE DAILY
     Route: 048
     Dates: start: 20050803, end: 20050806
  2. KETEK [Suspect]
     Indication: SINUSITIS
     Dosage: 800 MG PO ONCE DAILY
     Route: 048
     Dates: start: 20050803, end: 20050806
  3. PREDNISONE [Concomitant]
  4. QVAR INHALER [Concomitant]
  5. NASACORT [Concomitant]

REACTIONS (2)
  - FEELING ABNORMAL [None]
  - VISION BLURRED [None]
